FAERS Safety Report 18876588 (Version 3)
Quarter: 2021Q1

REPORT INFORMATION
  Report Type: Report from Study
  Country: ES (occurrence: ES)
  Receive Date: 20210211
  Receipt Date: 20210219
  Transmission Date: 20210420
  Serious: Yes (Hospitalization, Other)
  Sender: FDA-Public Use
  Company Number: ES-ROCHE-2762412

PATIENT
  Age: 65 Year
  Sex: Female
  Weight: 61 kg

DRUGS (6)
  1. ATEZOLIZUMAB. [Suspect]
     Active Substance: ATEZOLIZUMAB
     Indication: PANCREATIC NEUROENDOCRINE TUMOUR
     Dosage: DATE OF MOST RECENT DOSE OF ATEZOLIZUMAB PRIOR TO SAE ONSET: 28/JAN/2021 (1200 MG) (CYCLE 4)
     Route: 042
     Dates: start: 20201117
  2. CABOZANTINIB [Suspect]
     Active Substance: CABOZANTINIB
     Indication: PANCREATIC NEUROENDOCRINE TUMOUR
     Dosage: DATE OF MOST RECENT DOSE OF CABOZANTINIB PRIOR TO SAE ONSET: 28/JAN/2021 (CYCLE 4)
     Route: 048
     Dates: start: 20201117
  3. FENTANYL. [Concomitant]
     Active Substance: FENTANYL
     Indication: TUMOUR PAIN
  4. TAPENTADOL [Concomitant]
     Active Substance: TAPENTADOL
     Indication: TUMOUR PAIN
  5. PARACETAMOL [Concomitant]
     Active Substance: ACETAMINOPHEN
     Indication: TUMOUR PAIN
     Route: 048
  6. PREGABALINE [Concomitant]
     Active Substance: PREGABALIN
     Indication: TUMOUR PAIN
     Route: 048

REACTIONS (11)
  - Vomiting [Unknown]
  - Hypertension [Unknown]
  - Vomiting [Unknown]
  - Urinary tract infection [Unknown]
  - Abdominal pain [Unknown]
  - Diarrhoea [Unknown]
  - Dysuria [Unknown]
  - Subileus [Recovering/Resolving]
  - Myasthenia gravis [Unknown]
  - Hypertension [Unknown]
  - Constipation [Unknown]

NARRATIVE: CASE EVENT DATE: 20201125
